FAERS Safety Report 5915501-4 (Version None)
Quarter: 2008Q4

REPORT INFORMATION
  Report Type: 
  Country: None (occurrence: None)
  Receive Date: 20081010
  Receipt Date: 20081003
  Transmission Date: 20090506
  Serious: Yes (Hospitalization)
  Sender: FDA-Public Use
  Company Number: US-GENENTECH-269360

PATIENT
  Sex: Female

DRUGS (18)
  1. BLINDED ANTI-CD40 [Suspect]
     Indication: DIFFUSE LARGE B-CELL LYMPHOMA
     Dosage: 2 MG, SINGLE
     Route: 042
     Dates: start: 20080729, end: 20080729
  2. BLINDED PLACEBO [Suspect]
     Indication: DIFFUSE LARGE B-CELL LYMPHOMA
     Dosage: 2 MG, SINGLE
     Route: 042
     Dates: start: 20080729, end: 20080729
  3. BLINDED ANTI-CD40 [Suspect]
     Dosage: 4 MG, SINGLE
     Route: 042
     Dates: start: 20080802, end: 20080802
  4. BLINDED PLACEBO [Suspect]
     Dosage: 4 MG, SINGLE
     Route: 042
     Dates: start: 20080802, end: 20080802
  5. BLINDED ANTI-CD40 [Suspect]
     Dosage: 8 MG, SINGLE
     Dates: start: 20080807, end: 20080911
  6. BLINDED PLACEBO [Suspect]
     Dosage: 8 MG, SINGLE
     Dates: start: 20080807, end: 20080911
  7. RITUXAN [Suspect]
     Indication: DIFFUSE LARGE B-CELL LYMPHOMA
     Dosage: 375 MG/M2, Q3W
     Route: 042
     Dates: start: 20080728, end: 20080911
  8. ETOPOSIDE [Suspect]
     Indication: DIFFUSE LARGE B-CELL LYMPHOMA
     Dosage: 100 MG/M2, Q3W
     Route: 042
     Dates: start: 20080730, end: 20080913
  9. CARBOPLATIN [Suspect]
     Indication: DIFFUSE LARGE B-CELL LYMPHOMA
     Dosage: 5 AUC, Q3W
     Route: 042
     Dates: start: 20080731, end: 20080912
  10. IFOSFAMIDE [Suspect]
     Indication: DIFFUSE LARGE B-CELL LYMPHOMA
     Dosage: 5000 MG/M2, Q3W
     Route: 042
     Dates: start: 20080731, end: 20080912
  11. OXYCODONE AND ACETAMINOPHEN [Concomitant]
     Indication: DRUG USE FOR UNKNOWN INDICATION
     Dosage: UNK
  12. SENNA [Concomitant]
     Indication: DRUG USE FOR UNKNOWN INDICATION
     Dosage: UNK
  13. AMBIEN [Concomitant]
     Indication: DRUG USE FOR UNKNOWN INDICATION
     Dosage: UNK
  14. ALBUTEROL [Concomitant]
     Indication: DRUG USE FOR UNKNOWN INDICATION
  15. TRIAMCINOLONE [Concomitant]
     Indication: DRUG USE FOR UNKNOWN INDICATION
     Dosage: UNK
  16. KLONOPIN [Concomitant]
     Indication: DRUG USE FOR UNKNOWN INDICATION
     Dosage: UNK
  17. LEXAPRO [Concomitant]
     Indication: DRUG USE FOR UNKNOWN INDICATION
  18. METRONIDAZOLE [Concomitant]
     Indication: DRUG USE FOR UNKNOWN INDICATION
     Dosage: UNK

REACTIONS (1)
  - FEBRILE NEUTROPENIA [None]
